FAERS Safety Report 7307529-7 (Version None)
Quarter: 2011Q1

REPORT INFORMATION
  Report Type: 
  Country: None (occurrence: None)
  Receive Date: 20110211
  Receipt Date: 20110204
  Transmission Date: 20110831
  Serious: Yes (Death, Hospitalization)
  Sender: FDA-Public Use
  Company Number: 112636

PATIENT
  Age: 36 Year
  Sex: Male

DRUGS (2)
  1. METHOTREXATE [Suspect]
     Indication: PSORIASIS
     Dosage: 20 THEN 25 MG/WEEK
  2. CYCLOSPORINE [Suspect]
     Indication: PSORIASIS

REACTIONS (3)
  - MYCOSIS FUNGOIDES STAGE IV [None]
  - NO THERAPEUTIC RESPONSE [None]
  - CELLULITIS [None]
